FAERS Safety Report 7414855-X (Version None)
Quarter: 2011Q1

REPORT INFORMATION
  Report Type: 
  Country: None (occurrence: None)
  Receive Date: 20110302
  Receipt Date: 20101222
  Transmission Date: 20110831
  Serious: No
  Sender: FDA-Public Use
  Company Number: 024325

PATIENT
  Sex: Male
  Weight: 97.1 kg

DRUGS (5)
  1. PAXIL [Concomitant]
  2. FLOMAX [Concomitant]
  3. AMBIEN [Suspect]
     Indication: INSOMNIA
     Dosage: (10 MG, AT BED TIME ORAL)
     Route: 048
     Dates: start: 20100901
  4. CIMZIA [Suspect]
     Indication: CROHN'S DISEASE
     Dosage: (2 SYRINGES ONCE A MONTH SUBCUTANEOUS)
     Route: 058
     Dates: start: 20090910
  5. VYTORIN [Concomitant]

REACTIONS (9)
  - INTESTINAL OBSTRUCTION [None]
  - CONSTIPATION [None]
  - PANIC ATTACK [None]
  - SLEEP DISORDER [None]
  - FATIGUE [None]
  - ABDOMINAL PAIN [None]
  - DYSPNOEA [None]
  - ABNORMAL BEHAVIOUR [None]
  - FEELING ABNORMAL [None]
